FAERS Safety Report 10703264 (Version 1)
Quarter: 2015Q1

REPORT INFORMATION
  Report Type: Spontaneous
  Country: US (occurrence: US)
  Receive Date: 20150112
  Receipt Date: 20150112
  Transmission Date: 20150721
  Serious: Yes (Hospitalization)
  Sender: FDA-Public Use
  Company Number: US-AUROBINDO-AUR-APL-2015-00065

PATIENT
  Age: 66 Year
  Sex: Male
  Weight: 122.45 kg

DRUGS (23)
  1. HUMALOG [Suspect]
     Active Substance: INSULIN LISPRO
     Indication: DIABETES MELLITUS
     Dosage: UNK, SLIDING SCALE, AS NECESSARY
     Route: 058
     Dates: start: 2004
  2. OMEPRAZOLE. [Suspect]
     Active Substance: OMEPRAZOLE
     Indication: GASTROOESOPHAGEAL REFLUX DISEASE
     Dosage: 40 MG, FOUR TIMES/DAY
     Route: 048
     Dates: start: 2002
  3. LORTAB                             /00917501/ [Suspect]
     Active Substance: LORATADINE
     Indication: SCIATICA
     Dosage: 1 DF, AS NECESSARY
     Route: 048
     Dates: start: 20130104
  4. XYZAL [Suspect]
     Active Substance: LEVOCETIRIZINE DIHYDROCHLORIDE
     Indication: SEASONAL ALLERGY
     Dosage: 5 MG, FOUR TIMES/DAY
     Route: 048
     Dates: start: 2013
  5. FOSAMAX [Suspect]
     Active Substance: ALENDRONATE SODIUM
     Indication: OSTEOPOROSIS
     Dosage: 70 MG, QWK
     Route: 048
     Dates: start: 2011
  6. VITAMIN D                          /00107901/ [Suspect]
     Active Substance: ERGOCALCIFEROL
     Indication: SUPPLEMENTATION THERAPY
     Dosage: 4000 IU, FOUR TIMES/DAY
     Route: 048
     Dates: start: 201102
  7. METFORMIN [Suspect]
     Active Substance: METFORMIN HYDROCHLORIDE
     Indication: DIABETES MELLITUS
     Dosage: 1500 MG, FOUR TIMES/DAY
     Route: 048
     Dates: start: 2000
  8. SYNTHROID [Suspect]
     Active Substance: LEVOTHYROXINE SODIUM
     Indication: HYPOTHYROIDISM
     Dosage: 112 ?G, FOUR TIMES/DAY
     Route: 048
     Dates: start: 2000
  9. TRAMADOL AND ACETAMINOPHEN [Suspect]
     Active Substance: ACETAMINOPHEN\TRAMADOL HYDROCHLORIDE
     Indication: RHEUMATOID ARTHRITIS
     Dosage: 37.5/325 MG, FOUR TIMES A DAY
     Route: 048
     Dates: start: 201301
  10. MELOXICAM 7.5MG ZYDUS PHARMACEUTICALS [Suspect]
     Active Substance: MELOXICAM
     Indication: RHEUMATOID ARTHRITIS
     Dosage: 7.5 MG, FOUR TIMES/DAY
     Route: 048
     Dates: start: 2012
  11. LANTUS [Suspect]
     Active Substance: INSULIN GLARGINE
     Dosage: 56 U, QAM
     Route: 058
     Dates: start: 20110504
  12. METHOTREXATE [Suspect]
     Active Substance: METHOTREXATE
     Indication: RHEUMATOID ARTHRITIS
     Dosage: 25 MG, QWK
     Route: 042
     Dates: start: 20100120, end: 20141229
  13. FLONASE [Suspect]
     Active Substance: FLUTICASONE PROPIONATE
     Indication: SEASONAL ALLERGY
     Dosage: 2 SPRAYS, FOUR TIMES/DAY
     Route: 045
     Dates: start: 20110517
  14. PREDNISOLONE. [Suspect]
     Active Substance: PREDNISOLONE
     Indication: RHEUMATOID ARTHRITIS
     Dosage: 10 MG, FOUR TIMES/DAY
     Route: 048
     Dates: start: 20141002
  15. LANTUS [Suspect]
     Active Substance: INSULIN GLARGINE
     Indication: DIABETES MELLITUS
     Dosage: 20 U, QPM
     Route: 058
     Dates: start: 20110504
  16. METOPROLOL 50MG [Suspect]
     Active Substance: METOPROLOL
     Indication: HYPERTENSION
     Dosage: 50 MG, FOUR TIMES/DAY
     Route: 048
     Dates: start: 2000
  17. RITUXIMAB [Suspect]
     Active Substance: RITUXIMAB
     Indication: RHEUMATOID ARTHRITIS
     Dosage: UNK
     Route: 042
     Dates: start: 20131212
  18. FOLIC ACID. [Suspect]
     Active Substance: FOLIC ACID
     Indication: SUPPLEMENTATION THERAPY
     Dosage: 1 MG, FOUR TIMES/DAY
     Route: 048
     Dates: start: 20100120
  19. LISINOPRIL. [Suspect]
     Active Substance: LISINOPRIL
     Indication: HYPERTENSION
     Dosage: 5 MG, FOUR TIMES/DAY
     Route: 048
     Dates: start: 20121206
  20. CRESTOR [Suspect]
     Active Substance: ROSUVASTATIN CALCIUM
     Indication: HYPERCHOLESTEROLAEMIA
     Dosage: 5 MG, FOUR TIMES/DAY
     Route: 048
     Dates: start: 2003
  21. ASPIRIN. [Suspect]
     Active Substance: ASPIRIN
     Indication: ANGINA PECTORIS
     Dosage: 325 MG, FOUR TIMES/DAY
     Route: 048
     Dates: start: 2004
  22. NITROQUICK [Suspect]
     Active Substance: NITROGLYCERIN
     Indication: ANGINA PECTORIS
     Dosage: 0.4 MG, AS NECESSARY
     Route: 048
     Dates: start: 2000
  23. VENTOLIN HFA [Suspect]
     Active Substance: ALBUTEROL SULFATE
     Indication: ASTHMA
     Dosage: 2 PUFFS, AS NECESSARY
     Dates: start: 20110207

REACTIONS (5)
  - Neutrophil count decreased [Unknown]
  - Impaired driving ability [Unknown]
  - Fatigue [None]
  - Febrile neutropenia [Not Recovered/Not Resolved]
  - Tremor [Unknown]

NARRATIVE: CASE EVENT DATE: 20141223
